FAERS Safety Report 24246337 (Version 1)
Quarter: 2024Q3

REPORT INFORMATION
  Report Type: Spontaneous
  Country: AU (occurrence: AU)
  Receive Date: 20240825
  Receipt Date: 20240825
  Transmission Date: 20241016
  Serious: Yes (Other)
  Sender: JOHNSON AND JOHNSON
  Company Number: AU-JNJFOC-20240846556

PATIENT
  Sex: Female

DRUGS (5)
  1. TREMFYA [Suspect]
     Active Substance: GUSELKUMAB
     Indication: Product used for unknown indication
     Dosage: HAD INJECTION ON 07-JUN-2024
     Route: 065
  2. TREMFYA [Suspect]
     Active Substance: GUSELKUMAB
  3. TREMFYA [Suspect]
     Active Substance: GUSELKUMAB
  4. HUMIRA [Suspect]
     Active Substance: ADALIMUMAB
     Indication: Product used for unknown indication
     Dosage: SINGLE DOSE PEN
     Route: 058
  5. METHOTREXATE [Concomitant]
     Active Substance: METHOTREXATE
     Indication: Product used for unknown indication
     Route: 058

REACTIONS (9)
  - Central nervous system lesion [Unknown]
  - Colitis ulcerative [Unknown]
  - Condition aggravated [Unknown]
  - Inflammatory marker increased [Unknown]
  - Intestinal obstruction [Unknown]
  - Learning disorder [Unknown]
  - Memory impairment [Unknown]
  - Oral herpes [Unknown]
  - Stress [Unknown]
